FAERS Safety Report 7727987 (Version 3)
Quarter: 2012Q4

REPORT INFORMATION
  Report Type: 
  Country: TR (occurrence: TR)
  Receive Date: 20101222
  Receipt Date: 20121204
  Transmission Date: 20130627
  Serious: Yes (Death, Other)
  Sender: FDA-Public Use
  Company Number: TR-CELGENEUS-161-21880-10121129

PATIENT
  Age: 61 Year
  Sex: Female
  Weight: 68 kg

DRUGS (5)
  1. REVLIMID [Suspect]
     Indication: MULTIPLE MYELOMA
     Dosage: 10 Milligram
     Route: 048
     Dates: start: 20101119, end: 20101206
  2. ASA [Suspect]
     Indication: DRUG USE FOR UNKNOWN INDICATION
     Dosage: 100 Milligram
     Route: 048
     Dates: start: 20101115
  3. DEXAMETHASONE [Suspect]
     Indication: MULTIPLE MYELOMA
     Dosage: 40 Milligram
     Route: 065
     Dates: start: 20101119, end: 20101206
  4. MELPHALAN [Concomitant]
     Indication: MULTIPLE MYELOMA
     Dosage: .15 milligram/kilogram
     Route: 065
     Dates: start: 20101115, end: 20101118
  5. PREDNISONE [Concomitant]
     Indication: MULTIPLE MYELOMA
     Dosage: 120 Milligram
     Route: 065
     Dates: start: 20101115, end: 20101118

REACTIONS (8)
  - Pain [Recovered/Resolved]
  - Urinary tract infection [Unknown]
  - Plasma cell myeloma [Fatal]
  - Micturition frequency decreased [Recovered/Resolved]
  - Insomnia [Recovered/Resolved]
  - Decreased appetite [Recovered/Resolved]
  - Weight decreased [Recovered/Resolved]
  - Oedema peripheral [Recovered/Resolved]
